FAERS Safety Report 16221063 (Version 1)
Quarter: 2019Q2

REPORT INFORMATION
  Report Type: Report from Study
  Country: None (occurrence: US)
  Receive Date: 20190421
  Receipt Date: 20190421
  Transmission Date: 20190711
  Serious: Yes (Hospitalization, Other)
  Sender: FDA-Public Use
  Company Number: US-ABBVIE-18K-163-2519773-00

PATIENT
  Age: 54 Year
  Sex: Female

DRUGS (2)
  1. HUMIRA [Suspect]
     Active Substance: ADALIMUMAB
     Indication: PSORIATIC ARTHROPATHY
  2. HUMIRA [Suspect]
     Active Substance: ADALIMUMAB
     Indication: PSORIASIS
     Route: 058
     Dates: end: 20190221

REACTIONS (6)
  - Osteoarthritis [Unknown]
  - Thrombosis [Unknown]
  - Pneumonia [Unknown]
  - Meniscus injury [Unknown]
  - Arthralgia [Unknown]
  - Sepsis [Unknown]

NARRATIVE: CASE EVENT DATE: 201707
